FAERS Safety Report 7623649-1 (Version None)
Quarter: 2011Q3

REPORT INFORMATION
  Report Type: 
  Country: None (occurrence: None)
  Receive Date: 20110720
  Receipt Date: 20110705
  Transmission Date: 20111222
  Serious: Yes (Hospitalization)
  Sender: FDA-Public Use
  Company Number: US-SANOFI-AVENTIS-2011SA044225

PATIENT
  Sex: Male
  Weight: 86 kg

DRUGS (6)
  1. WARFARIN SODIUM [Concomitant]
  2. BENAZEPRIL HYDROCHLORIDE [Concomitant]
     Dates: end: 20110411
  3. DRONEDARONE HCL [Suspect]
     Indication: ATRIAL FIBRILLATION
     Route: 048
     Dates: start: 20110316
  4. METFORMIN HCL [Concomitant]
     Dates: end: 20110317
  5. NIFEDIPINE [Concomitant]
  6. ASPIRIN [Concomitant]

REACTIONS (2)
  - RENAL FAILURE ACUTE [None]
  - ANAEMIA [None]
